FAERS Safety Report 9015208 (Version 1)
Quarter: 2013Q1

REPORT INFORMATION
  Report Type: Spontaneous
  Country: US (occurrence: None)
  Receive Date: 20130103
  Receipt Date: 20130103
  Transmission Date: 20140127
  Serious: Yes (Death)
  Sender: FDA-Public Use
  Company Number: 2012120101

PATIENT
  Age: 58 Year
  Sex: Male

DRUGS (8)
  1. CARISOPRODOL (CARISOPRODOL) [Suspect]
     Indication: COMPLETED SUICIDE
  2. ZOLPIDEM [Suspect]
     Indication: COMPLETED SUICIDE
  3. METAXALONE (METAXALONE) [Suspect]
     Indication: COMPLETED SUICIDE
  4. CITALOPRAM (CITALOPRAM) [Suspect]
     Indication: COMPLETED SUICIDE
  5. TEMAZEPAM (TEMAZEPAM) [Suspect]
     Indication: COMPLETED SUICIDE
  6. HYDROCODONE [Suspect]
     Indication: COMPLETED SUICIDE
  7. PROMETHAZINE (PROMETHAZINE) [Suspect]
     Indication: COMPLETED SUICIDE
  8. DIPHENHYDRAMINE [Suspect]

REACTIONS (2)
  - Completed suicide [None]
  - Toxicity to various agents [None]
